FAERS Safety Report 5277214-4 (Version None)
Quarter: 2007Q1

REPORT INFORMATION
  Report Type: 
  Country: None (occurrence: None)
  Receive Date: 20070327
  Receipt Date: 20070315
  Transmission Date: 20070707
  Serious: Yes (Hospitalization)
  Sender: FDA-Public Use
  Company Number: US-JNJFOC-20070304027

PATIENT
  Sex: Female
  Weight: 86.18 kg

DRUGS (9)
  1. INFLIXIMAB [Suspect]
     Indication: RHEUMATOID ARTHRITIS
     Route: 042
  2. METHOTREXATE [Concomitant]
  3. PREDNISONE [Concomitant]
  4. HYDROCHLOROTHIAZIDE [Concomitant]
  5. ALLEGRA [Concomitant]
  6. PREMPRO [Concomitant]
     Dosage: .625/2.5MG DAILY
  7. MULTI-VITAMIN [Concomitant]
  8. FOLIC ACID [Concomitant]
     Dosage: 1-2 TABS DAILY
  9. DARVOCET-N 100 [Concomitant]

REACTIONS (1)
  - BURSITIS [None]
